FAERS Safety Report 18364548 (Version 1)
Quarter: 2020Q4

REPORT INFORMATION
  Report Type: Spontaneous
  Country: DE (occurrence: DE)
  Receive Date: 20201009
  Receipt Date: 20201009
  Transmission Date: 20210114
  Serious: Yes (Other)
  Sender: FDA-Public Use
  Company Number: NVSC2020DE232628

PATIENT
  Sex: Female

DRUGS (7)
  1. ABATACEPT [Suspect]
     Active Substance: ABATACEPT
     Indication: RHEUMATOID ARTHRITIS
     Dosage: 125 MG, QW
     Route: 058
     Dates: start: 20191206, end: 20200221
  2. METHOTREXATE. [Suspect]
     Active Substance: METHOTREXATE
     Indication: PRODUCT USED FOR UNKNOWN INDICATION
     Dosage: 7.5 MG
     Route: 065
  3. ABATACEPT [Suspect]
     Active Substance: ABATACEPT
     Dosage: 788.162 MG (CUMULATIVE DOSE TO FIRST REACTION)
     Route: 058
  4. ABATACEPT [Suspect]
     Active Substance: ABATACEPT
     Dosage: 125 MG, QW
     Route: 058
     Dates: start: 20200401, end: 20200706
  5. ABATACEPT [Suspect]
     Active Substance: ABATACEPT
     Dosage: 500 MG, Q4W
     Route: 042
     Dates: start: 20200707
  6. ABATACEPT [Suspect]
     Active Substance: ABATACEPT
     Indication: RHEUMATOID ARTHRITIS
     Dosage: 500 MG, Q4W
     Route: 042
     Dates: start: 20191206
  7. ABATACEPT [Suspect]
     Active Substance: ABATACEPT
     Dosage: 500 MG, Q4W
     Route: 042
     Dates: start: 20200310, end: 20200310

REACTIONS (3)
  - Erythema [Not Recovered/Not Resolved]
  - Nausea [Recovered/Resolved]
  - Borrelia infection [Recovered/Resolved]

NARRATIVE: CASE EVENT DATE: 20200115
